FAERS Safety Report 5261091-1 (Version None)
Quarter: 2007Q1

REPORT INFORMATION
  Report Type: 
  Country: None (occurrence: None)
  Receive Date: 20070309
  Receipt Date: 20070226
  Transmission Date: 20070707
  Serious: Yes (Other)
  Sender: FDA-Public Use
  Company Number: CA-AMGEN-US208953

PATIENT
  Sex: Male
  Weight: 103.5 kg

DRUGS (4)
  1. ENBREL [Suspect]
     Indication: PSORIASIS
     Route: 058
     Dates: start: 20060401
  2. ENBREL [Suspect]
     Indication: PSORIATIC ARTHROPATHY
  3. XALATAN [Concomitant]
     Route: 065
     Dates: start: 20061001
  4. ZYMAR [Concomitant]
     Route: 065
     Dates: start: 20061001

REACTIONS (3)
  - CONTACT LENS COMPLICATION [None]
  - CORNEAL EROSION [None]
  - HERPES VIRUS INFECTION [None]
